FAERS Safety Report 4909209-1 (Version None)
Quarter: 2006Q1

REPORT INFORMATION
  Report Type: 
  Country: None (occurrence: None)
  Receive Date: 20060213
  Receipt Date: 20060202
  Transmission Date: 20060701
  Serious: Yes (Other)
  Sender: FDA-Public Use
  Company Number: PHEH2006US01634

PATIENT
  Age: 81 Year
  Sex: Male
  Weight: 88.888 kg

DRUGS (5)
  1. ZOMETA [Suspect]
     Indication: MULTIPLE MYELOMA
     Dosage: 4 MG, QMO
     Dates: start: 20040729, end: 20051208
  2. VELCADE [Concomitant]
  3. ARANESP [Concomitant]
  4. KYTRIL [Concomitant]
  5. DEXAMETHASONE [Concomitant]

REACTIONS (3)
  - DENTAL TREATMENT [None]
  - OSTEONECROSIS [None]
  - PAIN IN JAW [None]
